FAERS Safety Report 9465055 (Version 3)
Quarter: 2014Q1

REPORT INFORMATION
  Report Type: Spontaneous
  Country: IT (occurrence: IT)
  Receive Date: 20130819
  Receipt Date: 20140128
  Transmission Date: 20141002
  Serious: Yes (Other)
  Sender: FDA-Public Use
  Company Number: IT-MYLANLABS-2013S1017749

PATIENT
  Age: 80 Year
  Sex: Male

DRUGS (8)
  1. ALFUZOSIN [Suspect]
     Indication: BENIGN PROSTATIC HYPERPLASIA
     Route: 048
     Dates: start: 20120329, end: 20130329
  2. AMLODIPINE [Interacting]
     Indication: HYPERTENSION
     Route: 048
     Dates: start: 20120329, end: 20130329
  3. SELES BETA [Interacting]
     Indication: PRODUCT USED FOR UNKNOWN INDICATION
     Route: 048
     Dates: start: 20120329, end: 20130329
  4. MODURETIC [Interacting]
     Indication: PRODUCT USED FOR UNKNOWN INDICATION
     Route: 048
     Dates: start: 20120329, end: 20130329
  5. ESIDREX [Interacting]
     Indication: PRODUCT USED FOR UNKNOWN INDICATION
     Route: 048
     Dates: start: 20120329, end: 20130329
  6. FLUVASTATIN [Concomitant]
     Indication: PRODUCT USED FOR UNKNOWN INDICATION
     Route: 048
     Dates: start: 20120329, end: 20130329
  7. TIMOLOL [Concomitant]
     Indication: PRODUCT USED FOR UNKNOWN INDICATION
     Dosage: ONE 5 ML BOTTLE 0.5 % OPTHALMIC SOLUTION
     Route: 047
     Dates: start: 20120329, end: 20130329
  8. CARDIOASPIRIN [Concomitant]
     Indication: PRODUCT USED FOR UNKNOWN INDICATION
     Route: 048
     Dates: start: 20120329, end: 20130329

REACTIONS (3)
  - Drug interaction [Unknown]
  - Orthostatic hypotension [Unknown]
  - Fall [Unknown]
